FAERS Safety Report 9398799 (Version 1)
Quarter: 2013Q3

REPORT INFORMATION
  Report Type: Spontaneous
  Country: IN (occurrence: IN)
  Receive Date: 20130712
  Receipt Date: 20130712
  Transmission Date: 20140515
  Serious: Yes (Hospitalization, Other)
  Sender: FDA-Public Use
  Company Number: IN-009507513-1307IND005059

PATIENT
  Age: 22 Year
  Sex: Male
  Weight: 64 kg

DRUGS (1)
  1. MONTELUKAST SODIUM [Suspect]
     Indication: RHINITIS ALLERGIC
     Dosage: 10 MG ORAL DAILY AFTER FOOD
     Route: 048

REACTIONS (6)
  - Hypercholesterolaemia [Recovered/Resolved]
  - Pancreatitis acute [Recovered/Resolved]
  - Hypertriglyceridaemia [Recovered/Resolved]
  - Weight increased [Recovered/Resolved]
  - Electrocardiogram ST segment abnormal [Recovered/Resolved]
  - Body fat disorder [Recovered/Resolved]
